FAERS Safety Report 9304560 (Version 1)
Quarter: 2013Q2

REPORT INFORMATION
  Report Type: Report from Study
  Country: CA (occurrence: CA)
  Receive Date: 20130523
  Receipt Date: 20130523
  Transmission Date: 20140414
  Serious: Yes (Hospitalization, Other)
  Sender: FDA-Public Use
  Company Number: CA-ROCHE-1149703

PATIENT
  Age: 67 Year
  Sex: Male

DRUGS (8)
  1. COPEGUS [Suspect]
     Route: 048
     Dates: start: 20121203
  2. INCIVEK [Suspect]
     Indication: HEPATITIS C
     Route: 048
     Dates: start: 20121010, end: 20130102
  3. LYRICA [Suspect]
     Indication: HEPATITIS C
     Route: 065
  4. RAMIPRIL [Concomitant]
     Indication: HYPERTENSION
     Route: 048
  5. ELAVIL [Concomitant]
     Indication: DEPRESSION
  6. TEGRETOL [Concomitant]
  7. PEGASYS [Suspect]
     Indication: HEPATITIS C
     Route: 058
     Dates: start: 20121010
  8. COPEGUS [Suspect]
     Indication: HEPATITIS C
     Route: 048
     Dates: start: 20121010

REACTIONS (6)
  - Anaemia [Recovered/Resolved]
  - Visual acuity reduced [Recovering/Resolving]
  - Retinopathy [Not Recovered/Not Resolved]
  - Transient ischaemic attack [Unknown]
  - Headache [Not Recovered/Not Resolved]
  - Gastric disorder [Not Recovered/Not Resolved]
